FAERS Safety Report 18574441 (Version 3)
Quarter: 2022Q2

REPORT INFORMATION
  Report Type: Other
  Country: US (occurrence: None)
  Receive Date: 20201203
  Receipt Date: 20220406
  Transmission Date: 20220720
  Serious: Yes (Other)
  Sender: FDA-Public Use
  Company Number: US-ROCHE-2718370

PATIENT
  Age: 57 Year
  Sex: Female
  Weight: 52.210 kg

DRUGS (14)
  1. OCREVUS [Suspect]
     Active Substance: OCRELIZUMAB
     Indication: Relapsing multiple sclerosis
     Dosage: THAN 600 MG EVERY 6 MONTHS
     Route: 042
     Dates: start: 20201021
  2. OCREVUS [Suspect]
     Active Substance: OCRELIZUMAB
     Route: 042
     Dates: start: 20201104
  3. OCREVUS [Suspect]
     Active Substance: OCRELIZUMAB
     Route: 042
     Dates: start: 2020
  4. GABAPENTIN [Concomitant]
     Active Substance: GABAPENTIN
     Indication: Multiple sclerosis
     Dosage: SUPPOSED TO TAKE 3 TIMES DAILY BUT TAKES 2 TIMES DAILY; STARTED BEFORE?OCREVUS
     Route: 048
  5. BACLOFEN [Concomitant]
     Active Substance: BACLOFEN
     Indication: Multiple sclerosis
     Dosage: STARTED BEFORE OCREVUS
     Route: 048
  6. LEXAPRO [Concomitant]
     Active Substance: ESCITALOPRAM OXALATE
     Indication: Multiple sclerosis
     Route: 048
  7. BUPROPION [Concomitant]
     Active Substance: BUPROPION
     Indication: Multiple sclerosis
     Dosage: STARTED BEFORE OCREVUS
     Route: 048
  8. HYDROCODONE [Concomitant]
     Active Substance: HYDROCODONE
     Indication: Multiple sclerosis
     Dosage: 10/325 MG DOSE; STARTED BEFORE OCREVUS
     Route: 048
  9. ALBUTEROL SULFATE [Concomitant]
     Active Substance: ALBUTEROL SULFATE
     Indication: Chronic obstructive pulmonary disease
     Dosage: TAKES 2 PUFFS EVERY 4 HOURS AS NEEDED; STARTED BEFORE OCREVUS
     Route: 055
  10. ALBUTEROL SULFATE [Concomitant]
     Active Substance: ALBUTEROL SULFATE
     Indication: Asthma
  11. FIBER [Concomitant]
     Active Substance: PSYLLIUM HUSK
     Indication: Constipation
     Dosage: STARTED BEFORE OCREVUS
     Route: 048
  12. CORRECTOL [BISACODYL] [Concomitant]
     Dosage: STARTED BEFORE OCREVUS
     Route: 048
  13. FLONASE [Concomitant]
     Active Substance: FLUTICASONE PROPIONATE
     Indication: Hypersensitivity
     Dosage: (2) 50 MCG SPRAYS DAILY - 1 IN EACH NOSTRIL; STARTED BEFORE OCREVUS
     Route: 045
  14. FLONASE [Concomitant]
     Active Substance: FLUTICASONE PROPIONATE
     Indication: Upper respiratory tract congestion

REACTIONS (5)
  - Cystitis [Recovered/Resolved]
  - Localised infection [Not Recovered/Not Resolved]
  - Urinary tract infection [Not Recovered/Not Resolved]
  - Nasopharyngitis [Recovered/Resolved]
  - Pneumonia [Not Recovered/Not Resolved]

NARRATIVE: CASE EVENT DATE: 20211201
